FAERS Safety Report 7787683-3 (Version None)
Quarter: 2011Q3

REPORT INFORMATION
  Report Type: 
  Country: None (occurrence: None)
  Receive Date: 20110929
  Receipt Date: 20110920
  Transmission Date: 20111222
  Serious: Yes (Other)
  Sender: FDA-Public Use
  Company Number: US-ASTRAZENECA-2011SE56768

PATIENT
  Age: 59 Year
  Sex: Male

DRUGS (3)
  1. TRILIPIX [Concomitant]
  2. LIPITOR [Concomitant]
  3. CRESTOR [Suspect]
     Route: 048

REACTIONS (3)
  - DRUG DOSE OMISSION [None]
  - NIGHTMARE [None]
  - HYPERTENSION [None]
